FAERS Safety Report 23427651 (Version 6)
Quarter: 2025Q3

REPORT INFORMATION
  Report Type: Spontaneous
  Country: EU (occurrence: EU)
  Receive Date: 20240122
  Receipt Date: 20250918
  Transmission Date: 20251020
  Serious: Yes (Life-Threatening, Hospitalization, Other)
  Sender: MYLAN
  Company Number: EU-Accord-399515

PATIENT
  Age: 25 Year
  Sex: Male

DRUGS (72)
  1. MYCOPHENOLATE MOFETIL [Suspect]
     Active Substance: MYCOPHENOLATE MOFETIL
     Indication: Prophylaxis against graft versus host disease
  2. MYCOPHENOLATE MOFETIL [Suspect]
     Active Substance: MYCOPHENOLATE MOFETIL
     Route: 065
  3. MYCOPHENOLATE MOFETIL [Suspect]
     Active Substance: MYCOPHENOLATE MOFETIL
     Route: 065
  4. MYCOPHENOLATE MOFETIL [Suspect]
     Active Substance: MYCOPHENOLATE MOFETIL
  5. FLUDARABINE [Suspect]
     Active Substance: FLUDARABINE PHOSPHATE
     Indication: Bone marrow conditioning regimen
     Route: 065
  6. FLUDARABINE [Suspect]
     Active Substance: FLUDARABINE PHOSPHATE
     Indication: Acute myeloid leukaemia refractory
  7. FLUDARABINE [Suspect]
     Active Substance: FLUDARABINE PHOSPHATE
  8. FLUDARABINE [Suspect]
     Active Substance: FLUDARABINE PHOSPHATE
     Route: 065
  9. FLUDARABINE [Suspect]
     Active Substance: FLUDARABINE PHOSPHATE
     Route: 065
  10. FLUDARABINE [Suspect]
     Active Substance: FLUDARABINE PHOSPHATE
  11. FLUDARABINE [Suspect]
     Active Substance: FLUDARABINE PHOSPHATE
  12. FLUDARABINE [Suspect]
     Active Substance: FLUDARABINE PHOSPHATE
     Route: 065
  13. CYCLOPHOSPHAMIDE [Suspect]
     Active Substance: CYCLOPHOSPHAMIDE
     Indication: Prophylaxis against graft versus host disease
  14. CYCLOPHOSPHAMIDE [Suspect]
     Active Substance: CYCLOPHOSPHAMIDE
     Route: 065
  15. CYCLOPHOSPHAMIDE [Suspect]
     Active Substance: CYCLOPHOSPHAMIDE
     Route: 065
  16. CYCLOPHOSPHAMIDE [Suspect]
     Active Substance: CYCLOPHOSPHAMIDE
  17. CYCLOSPORINE [Suspect]
     Active Substance: CYCLOSPORINE
     Indication: Prophylaxis against graft versus host disease
  18. CYCLOSPORINE [Suspect]
     Active Substance: CYCLOSPORINE
     Route: 065
  19. CYCLOSPORINE [Suspect]
     Active Substance: CYCLOSPORINE
     Route: 065
  20. CYCLOSPORINE [Suspect]
     Active Substance: CYCLOSPORINE
  21. BUSULFAN [Suspect]
     Active Substance: BUSULFAN
     Indication: Acute myeloid leukaemia refractory
  22. BUSULFAN [Suspect]
     Active Substance: BUSULFAN
     Indication: Bone marrow conditioning regimen
     Route: 065
  23. BUSULFAN [Suspect]
     Active Substance: BUSULFAN
     Route: 065
  24. BUSULFAN [Suspect]
     Active Substance: BUSULFAN
  25. CYTARABINE [Suspect]
     Active Substance: CYTARABINE
     Indication: Acute myeloid leukaemia
     Route: 065
  26. CYTARABINE [Suspect]
     Active Substance: CYTARABINE
     Indication: Acute myeloid leukaemia refractory
  27. CYTARABINE [Suspect]
     Active Substance: CYTARABINE
  28. CYTARABINE [Suspect]
     Active Substance: CYTARABINE
     Route: 065
  29. CYTARABINE [Suspect]
     Active Substance: CYTARABINE
     Route: 065
  30. CYTARABINE [Suspect]
     Active Substance: CYTARABINE
  31. CYTARABINE [Suspect]
     Active Substance: CYTARABINE
  32. CYTARABINE [Suspect]
     Active Substance: CYTARABINE
     Route: 065
  33. IDARUBICIN [Suspect]
     Active Substance: IDARUBICIN
     Indication: Acute myeloid leukaemia
     Route: 065
  34. IDARUBICIN [Suspect]
     Active Substance: IDARUBICIN
     Indication: Acute myeloid leukaemia refractory
  35. IDARUBICIN [Suspect]
     Active Substance: IDARUBICIN
  36. IDARUBICIN [Suspect]
     Active Substance: IDARUBICIN
     Route: 065
  37. IDARUBICIN [Suspect]
     Active Substance: IDARUBICIN
     Route: 065
  38. IDARUBICIN [Suspect]
     Active Substance: IDARUBICIN
  39. IDARUBICIN [Suspect]
     Active Substance: IDARUBICIN
  40. IDARUBICIN [Suspect]
     Active Substance: IDARUBICIN
     Route: 065
  41. AZACITIDINE [Suspect]
     Active Substance: AZACITIDINE
     Indication: Acute myeloid leukaemia refractory
     Route: 065
  42. AZACITIDINE [Suspect]
     Active Substance: AZACITIDINE
  43. AZACITIDINE [Suspect]
     Active Substance: AZACITIDINE
  44. AZACITIDINE [Suspect]
     Active Substance: AZACITIDINE
     Route: 065
  45. AZACITIDINE [Suspect]
     Active Substance: AZACITIDINE
     Route: 065
  46. AZACITIDINE [Suspect]
     Active Substance: AZACITIDINE
  47. AZACITIDINE [Suspect]
     Active Substance: AZACITIDINE
  48. AZACITIDINE [Suspect]
     Active Substance: AZACITIDINE
     Route: 065
  49. GEMTUZUMAB OZOGAMICIN [Suspect]
     Active Substance: GEMTUZUMAB OZOGAMICIN
     Indication: Acute myeloid leukaemia
     Route: 065
  50. GEMTUZUMAB OZOGAMICIN [Suspect]
     Active Substance: GEMTUZUMAB OZOGAMICIN
     Indication: Acute myeloid leukaemia refractory
  51. GEMTUZUMAB OZOGAMICIN [Suspect]
     Active Substance: GEMTUZUMAB OZOGAMICIN
  52. GEMTUZUMAB OZOGAMICIN [Suspect]
     Active Substance: GEMTUZUMAB OZOGAMICIN
     Route: 065
  53. GEMTUZUMAB OZOGAMICIN [Suspect]
     Active Substance: GEMTUZUMAB OZOGAMICIN
     Route: 065
  54. GEMTUZUMAB OZOGAMICIN [Suspect]
     Active Substance: GEMTUZUMAB OZOGAMICIN
  55. GEMTUZUMAB OZOGAMICIN [Suspect]
     Active Substance: GEMTUZUMAB OZOGAMICIN
  56. GEMTUZUMAB OZOGAMICIN [Suspect]
     Active Substance: GEMTUZUMAB OZOGAMICIN
     Route: 065
  57. VENETOCLAX [Suspect]
     Active Substance: VENETOCLAX
     Indication: Acute myeloid leukaemia refractory
  58. VENETOCLAX [Suspect]
     Active Substance: VENETOCLAX
     Route: 065
  59. VENETOCLAX [Suspect]
     Active Substance: VENETOCLAX
     Route: 065
  60. VENETOCLAX [Suspect]
     Active Substance: VENETOCLAX
  61. URSODIOL [Suspect]
     Active Substance: URSODIOL
     Indication: Prophylaxis
  62. URSODIOL [Suspect]
     Active Substance: URSODIOL
     Route: 065
  63. URSODIOL [Suspect]
     Active Substance: URSODIOL
     Route: 065
  64. URSODIOL [Suspect]
     Active Substance: URSODIOL
  65. THIOTEPA [Suspect]
     Active Substance: THIOTEPA
     Indication: Bone marrow conditioning regimen
  66. THIOTEPA [Suspect]
     Active Substance: THIOTEPA
  67. THIOTEPA [Suspect]
     Active Substance: THIOTEPA
     Route: 065
  68. THIOTEPA [Suspect]
     Active Substance: THIOTEPA
     Route: 065
  69. THIOTEPA [Suspect]
     Active Substance: THIOTEPA
  70. THIOTEPA [Suspect]
     Active Substance: THIOTEPA
  71. THIOTEPA [Suspect]
     Active Substance: THIOTEPA
     Route: 065
  72. THIOTEPA [Suspect]
     Active Substance: THIOTEPA
     Route: 065

REACTIONS (9)
  - Venoocclusive liver disease [Recovered/Resolved]
  - Renal failure [Unknown]
  - Respiratory failure [Unknown]
  - Hepatic failure [Unknown]
  - Congenital aplasia [Recovered/Resolved]
  - Abdominal pain [Recovered/Resolved]
  - Blood bilirubin decreased [Unknown]
  - Drug ineffective [Unknown]
  - Off label use [Unknown]
